FAERS Safety Report 5479303-8 (Version None)
Quarter: 2007Q4

REPORT INFORMATION
  Report Type: 
  Country: None (occurrence: None)
  Receive Date: 20071008
  Receipt Date: 20070926
  Transmission Date: 20080405
  Serious: No
  Sender: FDA-Public Use
  Company Number: PHBS2007JP11465

PATIENT
  Age: 80 Year
  Sex: Male
  Weight: 45 kg

DRUGS (2)
  1. ZOMETA [Suspect]
     Indication: METASTASES TO BONE
     Dosage: 4 MG, ONCE/SINGLE
     Route: 041
     Dates: start: 20070621, end: 20070621
  2. RADIOTHERAPY [Concomitant]
     Indication: METASTASES TO BONE
     Dates: start: 20070607, end: 20070709

REACTIONS (1)
  - HYPOAESTHESIA [None]
